FAERS Safety Report 5719396-3 (Version None)
Quarter: 2008Q2

REPORT INFORMATION
  Report Type: 
  Country: None (occurrence: None)
  Receive Date: 20080428
  Receipt Date: 20080421
  Transmission Date: 20081010
  Serious: Yes (Disabling, Other)
  Sender: FDA-Public Use
  Company Number: PHHY2008IT05868

PATIENT
  Age: 70 Year
  Sex: Female

DRUGS (4)
  1. ZOMETA [Suspect]
     Indication: METASTASES TO BONE
     Dosage: 4 MG, ONE DOSE EVERY 4 WEEKS
     Route: 042
     Dates: start: 20061001, end: 20080301
  2. EUTIROX [Concomitant]
     Dosage: 100 MG
     Route: 048
  3. CACIT [Concomitant]
     Dosage: 1 POSOLOGIC UNIT
     Route: 048
  4. CO-EFFERALGAN [Concomitant]
     Dosage: 3 POSOLOGIC UNITS
     Route: 048

REACTIONS (3)
  - ORAL DISORDER [None]
  - OSTEONECROSIS [None]
  - SCINTIGRAPHY [None]
